FAERS Safety Report 5198973-5 (Version None)
Quarter: 2006Q4

REPORT INFORMATION
  Report Type: 
  Country: None (occurrence: None)
  Receive Date: 20060921
  Receipt Date: 20060622
  Transmission Date: 20070319
  Serious: Yes (Other)
  Sender: FDA-Public Use
  Company Number: PHEH2006US08133

PATIENT
  Age: 33 Year
  Sex: Male

DRUGS (2)
  1. ZELNORM [Suspect]
     Indication: GASTRIC DISORDER
     Dates: start: 20060601
  2. PREVACID [Suspect]
     Indication: GASTRIC DISORDER
     Dates: start: 20060601

REACTIONS (3)
  - CRYING [None]
  - DEPRESSION [None]
  - FEELING ABNORMAL [None]
